FAERS Safety Report 7527522-9 (Version None)
Quarter: 2011Q2

REPORT INFORMATION
  Report Type: 
  Country: None (occurrence: None)
  Receive Date: 20110527
  Receipt Date: 20110516
  Transmission Date: 20111010
  Serious: Yes (Life-Threatening)
  Sender: FDA-Public Use
  Company Number: IDA-00544

PATIENT
  Age: 15 Year
  Sex: Female

DRUGS (1)
  1. INDERAL [Suspect]
     Dosage: 10 MG X 20 TABLETS , ORAL
     Route: 048

REACTIONS (2)
  - INTENTIONAL OVERDOSE [None]
  - SUICIDE ATTEMPT [None]
